FAERS Safety Report 8787410 (Version 1)
Quarter: 2012Q4

REPORT INFORMATION
  Report Type: Report from Study
  Country: US (occurrence: US)
  Receive Date: 20120914
  Receipt Date: 20120914
  Transmission Date: 20130627
  Serious: No
  Sender: FDA-Public Use
  Company Number: US-VERTEX PHARMACEUTICAL INC.-AE-2012-011533

PATIENT
  Age: 52 Year
  Sex: Female

DRUGS (10)
  1. INCIVEK [Suspect]
     Indication: HEPATITIS C
     Route: 048
  2. PEGASYS [Concomitant]
     Indication: HEPATITIS C
  3. RIBAPAK PAK [Concomitant]
     Indication: HEPATITIS C
  4. TRAMADOL HCL [Concomitant]
  5. GABAPENTIN [Concomitant]
  6. CALCIUM+D [Concomitant]
  7. TYLENOL [Concomitant]
  8. AZELASTINE [Concomitant]
  9. IBUPROFEN [Concomitant]
  10. NORVASC [Concomitant]

REACTIONS (3)
  - Influenza like illness [Unknown]
  - Alopecia [Unknown]
  - Vomiting [Unknown]
